FAERS Safety Report 5504783-9 (Version None)
Quarter: 2007Q4

REPORT INFORMATION
  Report Type: 
  Country: None (occurrence: None)
  Receive Date: 20071031
  Receipt Date: 20071031
  Transmission Date: 20080405
  Serious: Yes (Hospitalization)
  Sender: FDA-Public Use
  Company Number: None

PATIENT
  Sex: Female
  Weight: 74.3899 kg

DRUGS (2)
  1. TAXOTERE [Suspect]
     Indication: NEOPLASM MALIGNANT
     Dosage: 137 MG Q3WEEKS IV
     Route: 042
     Dates: start: 20071024
  2. VELCADE [Suspect]
     Dosage: 2.9MG D1 D8 Q21 D IV
     Route: 042
     Dates: start: 20071024

REACTIONS (6)
  - CONVULSION [None]
  - DEHYDRATION [None]
  - NAUSEA [None]
  - NERVOUS SYSTEM DISORDER [None]
  - SYNCOPE [None]
  - VOMITING [None]
